FAERS Safety Report 5679287-3 (Version None)
Quarter: 2008Q1

REPORT INFORMATION
  Report Type: 
  Country: None (occurrence: None)
  Receive Date: 20080325
  Receipt Date: 20080314
  Transmission Date: 20080703
  Serious: Yes (Other)
  Sender: FDA-Public Use
  Company Number: ZA-JNJFOC-20080303988

PATIENT
  Sex: Male

DRUGS (2)
  1. RISPERDAL [Suspect]
  2. RISPERDAL [Suspect]
     Indication: DEPRESSION

REACTIONS (13)
  - ABDOMINAL DISTENSION [None]
  - ABDOMINAL PAIN [None]
  - ASTHENIA [None]
  - CONSTIPATION [None]
  - DEPRESSION [None]
  - DYSPEPSIA [None]
  - GASTRIC INFECTION [None]
  - GASTRIC ULCER [None]
  - HELICOBACTER INFECTION [None]
  - INSOMNIA [None]
  - PANIC ATTACK [None]
  - RESTLESS LEGS SYNDROME [None]
  - SLUGGISHNESS [None]
